FAERS Safety Report 19942501 (Version 1)
Quarter: 2021Q4

REPORT INFORMATION
  Report Type: Spontaneous
  Country: US (occurrence: US)
  Receive Date: 20211008
  Receipt Date: 20211008
  Transmission Date: 20220303
  Serious: Yes (Life-Threatening, Disabling)
  Sender: FDA-Public Use
  Company Number: None

PATIENT
  Age: 49 Year
  Sex: Female

DRUGS (17)
  1. HYDROXYCHLOROQUINE SULFATE [Suspect]
     Active Substance: HYDROXYCHLOROQUINE SULFATE
     Indication: Granuloma annulare
     Dosage: ?          QUANTITY:1 TABLET(S);
     Route: 048
     Dates: start: 20211007, end: 20211007
  2. ARMOUR THYROID [Concomitant]
     Active Substance: THYROID, PORCINE
  3. CALCITRIOL [Concomitant]
     Active Substance: CALCITRIOL
  4. ATORVASTATIN [Concomitant]
     Active Substance: ATORVASTATIN
  5. BISOPROLOL FUMARATE\HYDROCHLOROTHIAZIDE [Concomitant]
     Active Substance: BISOPROLOL FUMARATE\HYDROCHLOROTHIAZIDE
  6. OZEMPIC [Concomitant]
     Active Substance: SEMAGLUTIDE
  7. PLAQUENIL [Concomitant]
     Active Substance: HYDROXYCHLOROQUINE SULFATE
  8. CLOBETASOL PROPIONATE [Concomitant]
     Active Substance: CLOBETASOL PROPIONATE
  9. COENZYME Q10 [Concomitant]
     Active Substance: DIETARY SUPPLEMENT\UBIDECARENONE
  10. LOW DOSE ASPIRIN [Concomitant]
     Active Substance: ASPIRIN
  11. CALCIUM CITRATE [Concomitant]
     Active Substance: CALCIUM CITRATE
  12. VITAMIN D3 [Concomitant]
     Active Substance: CHOLECALCIFEROL
  13. CHELATED MAGNESIUM [Concomitant]
  14. FISH OIL [Concomitant]
     Active Substance: FISH OIL
  15. FOLIC ACID [Concomitant]
     Active Substance: FOLIC ACID
  16. POTASSIUM GLUCONATE [Concomitant]
     Active Substance: POTASSIUM GLUCONATE
  17. VITAMIN E [Concomitant]
     Active Substance: .ALPHA.-TOCOPHEROL

REACTIONS (1)
  - Tetany [None]

NARRATIVE: CASE EVENT DATE: 20211007
